FAERS Safety Report 21497072 (Version 1)
Quarter: 2022Q4

REPORT INFORMATION
  Report Type: Report from Study
  Country: US (occurrence: US)
  Receive Date: 20221023
  Receipt Date: 20221023
  Transmission Date: 20230112
  Serious: Yes (Other)
  Sender: FDA-Public Use
  Company Number: US-JNJFOC-20221043480

PATIENT
  Sex: Female

DRUGS (1)
  1. ELMIRON [Suspect]
     Active Substance: PENTOSAN POLYSULFATE SODIUM
     Indication: Cystitis interstitial
     Route: 048

REACTIONS (6)
  - Neovascular age-related macular degeneration [Unknown]
  - Dry age-related macular degeneration [Unknown]
  - Macular degeneration [Unknown]
  - Retinal drusen [Unknown]
  - Hereditary retinal dystrophy [Unknown]
  - Maculopathy [Unknown]
